FAERS Safety Report 9440089 (Version 2)
Quarter: 2013Q3

REPORT INFORMATION
  Report Type: Spontaneous
  Country: US (occurrence: US)
  Receive Date: 20130805
  Receipt Date: 20130913
  Transmission Date: 20140515
  Serious: Yes (Other)
  Sender: FDA-Public Use
  Company Number: US-PFIZER INC-2013224260

PATIENT
  Age: 71 Year
  Sex: Female
  Weight: 72.56 kg

DRUGS (5)
  1. NORVASC [Suspect]
     Indication: HYPERTENSION
     Dosage: UNK
  2. LIPITOR [Interacting]
     Indication: BLOOD CHOLESTEROL INCREASED
     Dosage: UNK
  3. DILTIAZEM HCL [Interacting]
     Indication: HYPERTENSION
     Dosage: 120 MG, DAILY
     Dates: start: 201305
  4. MECLOZINE HCL [Suspect]
     Indication: VERTIGO
     Dosage: UNK, SINGLE
  5. VERAPAMIL HCL [Suspect]
     Indication: HYPERTENSION
     Dosage: UNK

REACTIONS (3)
  - Vertigo [Not Recovered/Not Resolved]
  - Nausea [Unknown]
  - Drug interaction [Unknown]
